FAERS Safety Report 4685010-1 (Version None)
Quarter: 2005Q2

REPORT INFORMATION
  Report Type: 
  Country: None (occurrence: None)
  Receive Date: 20050531
  Receipt Date: 20050307
  Transmission Date: 20051028
  Serious: No
  Sender: FDA-Public Use
  Company Number: WAES 0503USA01044

PATIENT
  Age: 67 Year
  Sex: Female

DRUGS (4)
  1. ZETIA [Suspect]
     Indication: BLOOD CHOLESTEROL INCREASED
     Dosage: 10 MG/DAILY/PO
     Route: 048
     Dates: start: 20050228
  2. HYDRODIURIL [Concomitant]
  3. PRINIVIL [Concomitant]
  4. GLIPIZIDE [Concomitant]

REACTIONS (1)
  - CONSTIPATION [None]
